FAERS Safety Report 7634119-9 (Version None)
Quarter: 2011Q3

REPORT INFORMATION
  Report Type: 
  Country: None (occurrence: None)
  Receive Date: 20110725
  Receipt Date: 20110721
  Transmission Date: 20111222
  Serious: No
  Sender: FDA-Public Use
  Company Number: US-PFIZER INC-2011166435

PATIENT
  Sex: Male

DRUGS (2)
  1. TEGRETOL [Concomitant]
     Dosage: UNK
  2. DILANTIN [Suspect]
     Dosage: UNK
     Route: 048

REACTIONS (2)
  - DRUG LEVEL ABOVE THERAPEUTIC [None]
  - INCORRECT DOSE ADMINISTERED [None]
